FAERS Safety Report 11443822 (Version 3)
Quarter: 2015Q4

REPORT INFORMATION
  Report Type: Spontaneous
  Country: IT (occurrence: IT)
  Receive Date: 20150901
  Receipt Date: 20151005
  Transmission Date: 20160304
  Serious: Yes (Other)
  Sender: FDA-Public Use
  Company Number: IT-AMGEN-ITASP2015088893

PATIENT
  Age: 60 Year
  Sex: Female

DRUGS (2)
  1. ENBREL [Suspect]
     Active Substance: ETANERCEPT
     Indication: RHEUMATOID ARTHRITIS
     Dosage: 50 MG, WEEKLY
     Route: 065
     Dates: start: 201412, end: 201502
  2. METHOTREXATE [Concomitant]
     Active Substance: METHOTREXATE
     Indication: INFECTED FISTULA
     Dosage: UNK

REACTIONS (5)
  - Eyelid pain [Unknown]
  - Joint swelling [Unknown]
  - Eye pain [Unknown]
  - Osteitis [Unknown]
  - Infected fistula [Unknown]

NARRATIVE: CASE EVENT DATE: 2015
